FAERS Safety Report 7031289-0 (Version None)
Quarter: 2010Q4

REPORT INFORMATION
  Report Type: 
  Country: None (occurrence: None)
  Receive Date: 20101006
  Receipt Date: 20100927
  Transmission Date: 20110411
  Serious: Yes (Other)
  Sender: FDA-Public Use
  Company Number: B0676409A

PATIENT
  Sex: Female

DRUGS (17)
  1. ZINNAT INJECTABLE [Suspect]
     Indication: PRODUCT USED FOR UNKNOWN INDICATION
     Dosage: 750MG FOUR TIMES PER DAY
     Route: 042
     Dates: start: 20100308, end: 20100310
  2. NEXIUM [Suspect]
     Dosage: 20MG PER DAY
     Route: 048
     Dates: start: 20100308, end: 20100314
  3. PROFENID [Suspect]
     Indication: PRODUCT USED FOR UNKNOWN INDICATION
     Dosage: 50MG FOUR TIMES PER DAY
     Route: 042
     Dates: start: 20100308, end: 20100309
  4. XARELTO [Suspect]
     Indication: THROMBOSIS PROPHYLAXIS
     Route: 048
     Dates: start: 20100308, end: 20100310
  5. TAMOXIFENE [Concomitant]
     Indication: BREAST CANCER
     Dosage: 20MG PER DAY
     Route: 048
  6. SPECIAFOLDINE [Concomitant]
     Dosage: 5MG TWICE PER DAY
     Route: 048
  7. TARDYFERON [Concomitant]
     Dosage: 80MG TWICE PER DAY
     Route: 048
  8. PROFENID [Concomitant]
     Dosage: 100MG TWICE PER DAY
     Route: 048
     Dates: start: 20100309, end: 20100315
  9. PERFALGAN [Concomitant]
     Indication: PAIN
     Dosage: 4G PER DAY
     Route: 042
     Dates: start: 20100308, end: 20100309
  10. DOLIPRANE [Concomitant]
     Indication: PAIN
     Dosage: 1000MG FOUR TIMES PER DAY
     Route: 048
     Dates: start: 20100309, end: 20100315
  11. ORGARAN [Concomitant]
     Route: 058
     Dates: start: 20100310, end: 20100322
  12. TRAMADOL HCL [Concomitant]
     Indication: PAIN
     Route: 048
     Dates: start: 20100314, end: 20100315
  13. MORPHINE [Concomitant]
     Dosage: 7.5MG SIX TIMES PER DAY
     Route: 058
     Dates: start: 20100308, end: 20100309
  14. ATARAX [Concomitant]
     Dosage: 50MG PER DAY
     Route: 065
     Dates: start: 20100307, end: 20100307
  15. NAROPIN [Concomitant]
     Route: 065
     Dates: start: 20100307, end: 20100308
  16. SOLU-MEDROL [Concomitant]
     Dosage: 80MG PER DAY
     Route: 065
     Dates: start: 20100312, end: 20100312
  17. NULYTELY [Concomitant]
     Route: 065
     Dates: start: 20100308, end: 20100309

REACTIONS (1)
  - THROMBOCYTOPENIA [None]
